FAERS Safety Report 8329968-8 (Version None)
Quarter: 2012Q2

REPORT INFORMATION
  Report Type: 
  Country: None (occurrence: None)
  Receive Date: 20120502
  Receipt Date: 20120426
  Transmission Date: 20120825
  Serious: Yes (Death)
  Sender: FDA-Public Use
  Company Number: US-JNJFOC-20110902934

PATIENT
  Sex: Female

DRUGS (4)
  1. TYLENOL (CAPLET) [Suspect]
     Indication: JOINT INJURY
     Dosage: TAKEN FOR 2-3 WEEKS OF UNKNOWN AMOUNTS
     Dates: start: 20100601
  2. TYLENOL (CAPLET) [Suspect]
     Indication: PYREXIA
     Dosage: TAKEN FOR 2-3 WEEKS OF UNKNOWN AMOUNTS
     Dates: start: 20100601
  3. TYLENOL (CAPLET) [Suspect]
     Indication: PAIN
     Dosage: TAKEN FOR 2-3 WEEKS OF UNKNOWN AMOUNTS
     Dates: start: 20100601
  4. IBUPROFEN (ADVIL) [Suspect]
     Indication: JOINT INJURY
     Route: 048

REACTIONS (5)
  - UPPER GASTROINTESTINAL HAEMORRHAGE [None]
  - TOXICITY TO VARIOUS AGENTS [None]
  - SUICIDE ATTEMPT [None]
  - ACUTE HEPATIC FAILURE [None]
  - OVERDOSE [None]
